FAERS Safety Report 13789863 (Version 1)
Quarter: 2017Q3

REPORT INFORMATION
  Report Type: Spontaneous
  Country: US (occurrence: US)
  Receive Date: 20170725
  Receipt Date: 20170725
  Transmission Date: 20171127
  Serious: Yes (Other)
  Sender: FDA-Public Use
  Company Number: US-NOVOPROD-554849

PATIENT
  Age: 72 Year
  Sex: Male
  Weight: 108.84 kg

DRUGS (1)
  1. LEVEMIR [Suspect]
     Active Substance: INSULIN DETEMIR
     Indication: TYPE 2 DIABETES MELLITUS
     Dosage: SLIDING SCALE
     Route: 058
     Dates: start: 2006

REACTIONS (4)
  - Hypoglycaemia [Unknown]
  - Seizure [Unknown]
  - Hyperglycaemia [Unknown]
  - Malaise [Unknown]
